FAERS Safety Report 10431494 (Version 1)
Quarter: 2014Q3

REPORT INFORMATION
  Report Type: Spontaneous
  Country: US (occurrence: None)
  Receive Date: 20140903
  Receipt Date: 20140903
  Transmission Date: 20150326
  Serious: No
  Sender: FDA-Public Use
  Company Number: CC14-1238

PATIENT
  Age: 58 Year
  Sex: Female
  Weight: 68.04 kg

DRUGS (3)
  1. IMIQUIMOD. [Suspect]
     Active Substance: IMIQUIMOD
     Indication: BASAL CELL CARCINOMA
     Route: 061
     Dates: start: 20140622, end: 201407
  2. LEVOTHYROXINE [Concomitant]
     Active Substance: LEVOTHYROXINE
  3. ATORVASTATIN [Concomitant]
     Active Substance: ATORVASTATIN

REACTIONS (4)
  - Pyrexia [None]
  - Influenza like illness [None]
  - Nausea [None]
  - Headache [None]

NARRATIVE: CASE EVENT DATE: 201407
